FAERS Safety Report 19145659 (Version 1)
Quarter: 2021Q2

REPORT INFORMATION
  Report Type: Report from Study
  Country: HN (occurrence: HN)
  Receive Date: 20210416
  Receipt Date: 20210416
  Transmission Date: 20210717
  Serious: Yes (Other)
  Sender: FDA-Public Use
  Company Number: NVSC2021HN083290

PATIENT
  Age: 67 Year
  Sex: Male
  Weight: 158.75 kg

DRUGS (1)
  1. EXFORGE HCT [Suspect]
     Active Substance: AMLODIPINE BESYLATE\HYDROCHLOROTHIAZIDE\VALSARTAN
     Indication: PRODUCT USED FOR UNKNOWN INDICATION
     Dosage: 1 DF
     Route: 065

REACTIONS (6)
  - Knee deformity [Unknown]
  - Hypertension [Unknown]
  - Chondropathy [Unknown]
  - Overweight [Unknown]
  - Gait disturbance [Unknown]
  - Diabetes mellitus [Unknown]
